FAERS Safety Report 6282574-1 (Version None)
Quarter: 2009Q3

REPORT INFORMATION
  Report Type: 
  Country: None (occurrence: None)
  Receive Date: 20090724
  Receipt Date: 20090722
  Transmission Date: 20100115
  Serious: Yes (Hospitalization)
  Sender: FDA-Public Use
  Company Number: AU-B.I. PHARMACEUTICALS,INC./RIDGEFIELD-2009-AU-00368AU

PATIENT
  Sex: Female

DRUGS (1)
  1. SPIRIVA [Suspect]
     Dates: start: 20010101

REACTIONS (2)
  - ACCIDENTAL OVERDOSE [None]
  - HOSPITALISATION [None]
